FAERS Safety Report 23110449 (Version 2)
Quarter: 2023Q4

REPORT INFORMATION
  Report Type: Spontaneous
  Country: US (occurrence: US)
  Receive Date: 20231026
  Receipt Date: 20231108
  Transmission Date: 20240110
  Serious: Yes (Other)
  Sender: FDA-Public Use
  Company Number: US-TEVA-2023-US-2937357

PATIENT
  Age: 6 Decade
  Sex: Female

DRUGS (3)
  1. GABAPENTIN [Suspect]
     Active Substance: GABAPENTIN
     Indication: Glossodynia
     Dosage: HIGH DOSE
     Route: 065
  2. LAMOTRIGINE [Suspect]
     Active Substance: LAMOTRIGINE
     Indication: Glossodynia
     Dosage: HIGH DOSE
     Route: 065
  3. PREGABALIN [Suspect]
     Active Substance: PREGABALIN
     Indication: Glossodynia
     Dosage: HIGH DOSE
     Route: 065

REACTIONS (3)
  - Hallucination, visual [Unknown]
  - Vertigo [Unknown]
  - Drug ineffective [Unknown]
